FAERS Safety Report 5239431-9 (Version None)
Quarter: 2007Q1

REPORT INFORMATION
  Report Type: 
  Country: None (occurrence: None)
  Receive Date: 20070216
  Receipt Date: 20070212
  Transmission Date: 20070707
  Serious: Yes (Hospitalization, Other)
  Sender: FDA-Public Use
  Company Number: HQWYE215903NOV04

PATIENT
  Sex: Female
  Weight: 80.81 kg

DRUGS (3)
  1. PREMPRO [Suspect]
  2. PROVERA [Suspect]
  3. PREMARIN [Suspect]

REACTIONS (8)
  - BREAST CANCER METASTATIC [None]
  - BREAST CANCER STAGE III [None]
  - COLORECTAL CANCER METASTATIC [None]
  - HEPATIC CIRRHOSIS [None]
  - LUNG NEOPLASM [None]
  - METASTASES TO LIVER [None]
  - OESTROGEN RECEPTOR ASSAY POSITIVE [None]
  - PROGESTERONE RECEPTOR ASSAY POSITIVE [None]
